FAERS Safety Report 23876875 (Version 1)
Quarter: 2024Q2

REPORT INFORMATION
  Report Type: Spontaneous
  Country: US (occurrence: US)
  Receive Date: 20240521
  Receipt Date: 20240521
  Transmission Date: 20240716
  Serious: Yes (Hospitalization)
  Sender: FDA-Public Use
  Company Number: US-IGSA-BIG0029061

PATIENT
  Sex: Male
  Weight: 61.224 kg

DRUGS (1)
  1. PROLASTIN-C LIQUID [Suspect]
     Active Substance: .ALPHA.1-PROTEINASE INHIBITOR HUMAN
     Indication: Alpha-1 antitrypsin deficiency
     Dosage: 3294 MILLIGRAM, Q.WK.
     Route: 042

REACTIONS (4)
  - Infection [Unknown]
  - Lung disorder [Unknown]
  - Dyspnoea [Unknown]
  - Product dose omission issue [Unknown]
